FAERS Safety Report 12595147 (Version 1)
Quarter: 2016Q3

REPORT INFORMATION
  Report Type: Report from Study
  Country: US (occurrence: US)
  Receive Date: 20160726
  Receipt Date: 20160726
  Transmission Date: 20161109
  Serious: No
  Sender: FDA-Public Use
  Company Number: US-AMGEN-USASL2016095747

PATIENT
  Age: 66 Year
  Sex: Female

DRUGS (1)
  1. ENBREL [Suspect]
     Active Substance: ETANERCEPT
     Indication: RHEUMATOID ARTHRITIS
     Dosage: UNK UNK, QWK
     Route: 065
     Dates: start: 20160325

REACTIONS (6)
  - Discomfort [Unknown]
  - Condition aggravated [Unknown]
  - Mobility decreased [Unknown]
  - Gait disturbance [Unknown]
  - Bursitis [Unknown]
  - Back pain [Unknown]

NARRATIVE: CASE EVENT DATE: 201607
